FAERS Safety Report 8315763-2 (Version None)
Quarter: 2012Q2

REPORT INFORMATION
  Report Type: 
  Country: None (occurrence: None)
  Receive Date: 20120426
  Receipt Date: 20120419
  Transmission Date: 20120825
  Serious: Yes (Death)
  Sender: FDA-Public Use
  Company Number: US-JNJFOC-20120409920

PATIENT

DRUGS (3)
  1. CONCENTRATED TYLENOL INFANT DROPS [Suspect]
     Indication: PRODUCT USED FOR UNKNOWN INDICATION
     Route: 065
  2. VACCINES [Suspect]
     Indication: PRODUCT USED FOR UNKNOWN INDICATION
     Route: 065
  3. CONCENTRATED TYLENOL INFANT DROPS [Suspect]
     Route: 065

REACTIONS (1)
  - DEATH [None]
